FAERS Safety Report 17273561 (Version 1)
Quarter: 2020Q1

REPORT INFORMATION
  Report Type: Spontaneous
  Country: US (occurrence: US)
  Receive Date: 20200115
  Receipt Date: 20200115
  Transmission Date: 20200409
  Serious: No
  Sender: FDA-Public Use
  Company Number: US-IBSA PHARMA-TIR-2019-0836

PATIENT
  Sex: Female

DRUGS (1)
  1. TIROSINT [Suspect]
     Active Substance: LEVOTHYROXINE SODIUM
     Indication: HYPOTHYROIDISM
     Dosage: 88MCG DAILY
     Route: 048
     Dates: start: 2019

REACTIONS (4)
  - Product physical issue [Unknown]
  - Alopecia [Unknown]
  - Hypothyroidism [Unknown]
  - Product formulation issue [Unknown]

NARRATIVE: CASE EVENT DATE: 2019
